FAERS Safety Report 6804887-4 (Version None)
Quarter: 2010Q2

REPORT INFORMATION
  Report Type: 
  Country: None (occurrence: None)
  Receive Date: 20100628
  Receipt Date: 20100628
  Transmission Date: 20101027
  Serious: Yes (Other)
  Sender: FDA-Public Use
  Company Number: None

PATIENT
  Sex: Male
  Weight: 97.977 kg

DRUGS (3)
  1. MORPHINE SULFATE [Suspect]
     Indication: POST LAMINECTOMY SYNDROME
     Dosage: 200 MG Q8 ONCE MONTH
  2. OXYCODONE HCL [Concomitant]
  3. SOMA [Concomitant]

REACTIONS (4)
  - NO THERAPEUTIC RESPONSE [None]
  - PRODUCT SUBSTITUTION ISSUE [None]
  - PRURITUS [None]
  - VOMITING [None]
